FAERS Safety Report 18850628 (Version 1)
Quarter: 2021Q1

REPORT INFORMATION
  Report Type: Spontaneous
  Country: AU (occurrence: AU)
  Receive Date: 20210205
  Receipt Date: 20210205
  Transmission Date: 20210420
  Serious: Yes (Death)
  Sender: FDA-Public Use
  Company Number: AU-ACCORD-216638

PATIENT
  Age: 59 Year
  Sex: Female

DRUGS (6)
  1. PREDNISOLONE. [Concomitant]
     Active Substance: PREDNISOLONE
  2. NEXIUM [Concomitant]
     Active Substance: ESOMEPRAZOLE MAGNESIUM
  3. MELOXICAM. [Concomitant]
     Active Substance: MELOXICAM
  4. RANITIDINE. [Concomitant]
     Active Substance: RANITIDINE
  5. TADALAFIL. [Suspect]
     Active Substance: TADALAFIL
     Indication: PRODUCT USED FOR UNKNOWN INDICATION
  6. MACITENTAN [Suspect]
     Active Substance: MACITENTAN
     Indication: PRODUCT USED FOR UNKNOWN INDICATION

REACTIONS (6)
  - Volvulus repair [Fatal]
  - Abdominal pain [Fatal]
  - Vomiting [Fatal]
  - Diarrhoea [Fatal]
  - Intestinal ischaemia [Fatal]
  - Volvulus of small bowel [Fatal]
